FAERS Safety Report 16628337 (Version 1)
Quarter: 2019Q3

REPORT INFORMATION
  Report Type: Report from Study
  Country: AR (occurrence: AR)
  Receive Date: 20190724
  Receipt Date: 20190724
  Transmission Date: 20191004
  Serious: Yes (Other)
  Sender: FDA-Public Use
  Company Number: AR-ASTRAZENECA-2019SF02450

PATIENT
  Sex: Female

DRUGS (1)
  1. TAGRISSO [Suspect]
     Active Substance: OSIMERTINIB
     Indication: LUNG NEOPLASM MALIGNANT
     Route: 048
     Dates: start: 20190522, end: 201905

REACTIONS (5)
  - Drug ineffective [Unknown]
  - Hepatic neoplasm [Unknown]
  - Metastasis [Unknown]
  - Vascular neoplasm [Unknown]
  - Mediastinum neoplasm [Unknown]
